FAERS Safety Report 5391246-7 (Version None)
Quarter: 2007Q3

REPORT INFORMATION
  Report Type: 
  Country: None (occurrence: None)
  Receive Date: 20070719
  Receipt Date: 20070712
  Transmission Date: 20080115
  Serious: Yes (Life-Threatening)
  Sender: FDA-Public Use
  Company Number: JP-GENENTECH-103720

PATIENT
  Sex: Female
  Weight: 43.75 kg

DRUGS (15)
  1. RITUXAN [Suspect]
     Route: 042
     Dates: start: 20011102, end: 20020111
  2. CYCLOPHOSPHAMIDE [Suspect]
     Route: 042
     Dates: start: 20010906, end: 20011221
  3. DOXORUBICIN HCL [Suspect]
     Route: 042
     Dates: start: 20010906, end: 20011221
  4. VINCRISTINE [Suspect]
     Route: 042
     Dates: start: 20010906, end: 20011221
  5. PREDNISOLONE [Suspect]
     Route: 048
     Dates: start: 20010906, end: 20011221
  6. LAMIVUDINE [Concomitant]
  7. BAKTAR [Concomitant]
  8. TEGRETOL [Concomitant]
  9. LUVOX [Concomitant]
  10. CONSTAN [Concomitant]
  11. METHYCOBAL [Concomitant]
  12. LIPITOR [Concomitant]
  13. MERISLON [Concomitant]
  14. CEROCRAL [Concomitant]
  15. PREDNISOLONE SODIUM SUCCINATE INJ [Concomitant]

REACTIONS (1)
  - HEPATITIS [None]
